FAERS Safety Report 7522884-0 (Version None)
Quarter: 2011Q2

REPORT INFORMATION
  Report Type: 
  Country: None (occurrence: None)
  Receive Date: 20110603
  Receipt Date: 20110523
  Transmission Date: 20111010
  Serious: Yes (Hospitalization)
  Sender: FDA-Public Use
  Company Number: PHHY2011MX45487

PATIENT
  Age: 71 Year
  Sex: Male

DRUGS (2)
  1. EXELON [Suspect]
     Indication: DEMENTIA ALZHEIMER'S TYPE
     Dosage: 9.5 MG/24 HR (1 PATCH 10CM^2/ DAY)
     Route: 062
     Dates: start: 20110501
  2. EXELON [Suspect]
     Dosage: HALF PATCH
     Route: 062

REACTIONS (4)
  - RESTLESSNESS [None]
  - NERVOUSNESS [None]
  - SLEEP DISORDER [None]
  - WRONG TECHNIQUE IN DRUG USAGE PROCESS [None]
